FAERS Safety Report 14637628 (Version 1)
Quarter: 2018Q1

REPORT INFORMATION
  Report Type: Spontaneous
  Country: US (occurrence: US)
  Receive Date: 20180314
  Receipt Date: 20180314
  Transmission Date: 20180509
  Serious: No
  Sender: FDA-Public Use
  Company Number: US-BAYER-2018-045034

PATIENT
  Age: 75 Year
  Sex: Male
  Weight: 82.99 kg

DRUGS (2)
  1. MIRALAX [Suspect]
     Active Substance: POLYETHYLENE GLYCOL 3350
     Indication: HAEMORRHOIDS
     Dosage: UNK UNK, QD
     Route: 065
     Dates: start: 201712
  2. DOCUSATE SODIUM. [Concomitant]
     Active Substance: DOCUSATE SODIUM
     Dosage: 100 MG, QD

REACTIONS (3)
  - Therapeutic response unexpected [Unknown]
  - Product use in unapproved indication [Unknown]
  - Faeces soft [Unknown]

NARRATIVE: CASE EVENT DATE: 201712
